FAERS Safety Report 16524878 (Version 1)
Quarter: 2019Q3

REPORT INFORMATION
  Report Type: Spontaneous
  Country: HR (occurrence: HR)
  Receive Date: 20190703
  Receipt Date: 20190703
  Transmission Date: 20191004
  Serious: Yes (Other)
  Sender: FDA-Public Use
  Company Number: HR-PFIZER INC-2019277622

PATIENT
  Sex: Female

DRUGS (6)
  1. DIAZEPAM. [Suspect]
     Active Substance: DIAZEPAM
     Indication: INSOMNIA
     Route: 048
     Dates: start: 201602, end: 20160731
  2. PORTAL [FLUOXETINE HYDROCHLORIDE] [Suspect]
     Active Substance: FLUOXETINE HYDROCHLORIDE
     Dosage: 20 MG, UNK
     Route: 048
  3. SANVAL [Suspect]
     Active Substance: ZOLPIDEM TARTRATE
     Dosage: UNK
     Route: 048
  4. ZOLOFT [Suspect]
     Active Substance: SERTRALINE HYDROCHLORIDE
     Dosage: UNK
     Route: 048
     Dates: start: 20160731, end: 201702
  5. VELAFAX [Suspect]
     Active Substance: VENLAFAXINE HYDROCHLORIDE
     Dosage: UNK
     Route: 048
  6. RIVOTRIL [Suspect]
     Active Substance: CLONAZEPAM
     Indication: AFFECTIVE DISORDER
     Dosage: UNK
     Route: 048

REACTIONS (26)
  - Weight decreased [Unknown]
  - Temperature regulation disorder [Unknown]
  - Drug dependence [Unknown]
  - Fatigue [Unknown]
  - Bradyphrenia [Unknown]
  - Hunger [Unknown]
  - Insomnia [Unknown]
  - Intentional product misuse [Unknown]
  - Dizziness [Unknown]
  - Drug withdrawal syndrome [Unknown]
  - Anorgasmia [Unknown]
  - Memory impairment [Unknown]
  - Tinnitus [Unknown]
  - Decreased interest [Unknown]
  - Back pain [Unknown]
  - Pyrexia [Unknown]
  - Cognitive disorder [Unknown]
  - Mental impairment [Unknown]
  - Delirium [Unknown]
  - Emotional disorder [Unknown]
  - Emotional poverty [Unknown]
  - Gait disturbance [Unknown]
  - Weight increased [Unknown]
  - Impaired quality of life [Unknown]
  - Hallucination [Unknown]
  - Poor quality sleep [Unknown]

NARRATIVE: CASE EVENT DATE: 2016
